FAERS Safety Report 21544021 (Version 1)
Quarter: 2022Q4

REPORT INFORMATION
  Report Type: Spontaneous
  Country: CA (occurrence: CA)
  Receive Date: 20221102
  Receipt Date: 20221102
  Transmission Date: 20230113
  Serious: Yes (Hospitalization)
  Sender: FDA-Public Use
  Company Number: CA-AstraZeneca-2022A357557

PATIENT
  Age: 52 Year
  Sex: Female

DRUGS (59)
  1. ACLIDINIUM BROMIDE [Suspect]
     Active Substance: ACLIDINIUM BROMIDE
     Indication: Product used for unknown indication
     Route: 065
  2. ACLIDINIUM BROMIDE [Suspect]
     Active Substance: ACLIDINIUM BROMIDE
     Indication: Product used for unknown indication
     Route: 065
  3. OMNARIS [Suspect]
     Active Substance: CICLESONIDE
     Indication: Product used for unknown indication
     Route: 065
  4. OMNARIS [Suspect]
     Active Substance: CICLESONIDE
     Indication: Seasonal allergy
  5. OMNARIS [Suspect]
     Active Substance: CICLESONIDE
     Indication: Rhinitis perennial
  6. FORMOTEROL FUMARATE [Suspect]
     Active Substance: FORMOTEROL FUMARATE
     Indication: Product used for unknown indication
     Route: 065
  7. QUETIAPINE FUMARATE [Suspect]
     Active Substance: QUETIAPINE FUMARATE
     Indication: Psychotic disorder
     Route: 048
  8. ACETAMINOPHEN [Suspect]
     Active Substance: ACETAMINOPHEN
     Indication: Product used for unknown indication
     Route: 048
  9. APTIVUS [Suspect]
     Active Substance: TIPRANAVIR
     Indication: HIV infection
     Route: 048
  10. ATROVENT [Suspect]
     Active Substance: IPRATROPIUM BROMIDE
     Indication: Product used for unknown indication
     Route: 065
  11. AZITHROMYCIN [Suspect]
     Active Substance: AZITHROMYCIN
     Indication: Product used for unknown indication
     Route: 065
  12. BREO ELLIPTA [Suspect]
     Active Substance: FLUTICASONE FUROATE\VILANTEROL TRIFENATATE
     Indication: Product used for unknown indication
     Route: 065
  13. CIPROFLOXACIN [Suspect]
     Active Substance: CIPROFLOXACIN
     Indication: Product used for unknown indication
     Route: 065
  14. CLONAZEPAM [Suspect]
     Active Substance: CLONAZEPAM
     Indication: Hypomania
     Route: 065
  15. DIAZEPAM [Suspect]
     Active Substance: DIAZEPAM
     Indication: Depression
     Route: 065
  16. DIAZEPAM [Suspect]
     Active Substance: DIAZEPAM
     Indication: Depression
     Route: 048
  17. DIAZEPAM [Suspect]
     Active Substance: DIAZEPAM
     Indication: Depression
     Route: 048
  18. GLYCOPYRROLATE [Suspect]
     Active Substance: GLYCOPYRROLATE
     Indication: Product used for unknown indication
     Route: 065
  19. MEPOLIZUMAB [Suspect]
     Active Substance: MEPOLIZUMAB
     Indication: Product used for unknown indication
     Route: 065
  20. MOXIFLOXACIN HYDROCHLORIDE [Suspect]
     Active Substance: MOXIFLOXACIN HYDROCHLORIDE
     Indication: Product used for unknown indication
     Route: 065
  21. NASONEX [Suspect]
     Active Substance: MOMETASONE FUROATE
     Indication: Product used for unknown indication
     Route: 065
  22. OLANZAPINE [Suspect]
     Active Substance: OLANZAPINE
     Indication: Musculoskeletal stiffness
     Route: 048
  23. OLANZAPINE [Suspect]
     Active Substance: OLANZAPINE
     Indication: Musculoskeletal stiffness
     Route: 048
  24. OLODATEROL HYDROCHLORIDE [Suspect]
     Active Substance: OLODATEROL HYDROCHLORIDE
     Indication: Product used for unknown indication
     Route: 065
  25. PREDNISONE [Suspect]
     Active Substance: PREDNISONE
     Indication: Product used for unknown indication
     Route: 065
  26. PROCYCLIDINE HYDROCHLORIDE [Suspect]
     Active Substance: PROCYCLIDINE HYDROCHLORIDE
     Indication: Product used for unknown indication
     Route: 048
  27. RISPERIDONE [Suspect]
     Active Substance: RISPERIDONE
     Indication: Psychotic disorder
     Route: 048
  28. ALBUTEROL [Suspect]
     Active Substance: ALBUTEROL
     Indication: Product used for unknown indication
     Route: 065
  29. SINGULAIR [Suspect]
     Active Substance: MONTELUKAST SODIUM
     Indication: Product used for unknown indication
     Route: 065
  30. TEGRETOL [Suspect]
     Active Substance: CARBAMAZEPINE
     Indication: Product used for unknown indication
     Route: 065
  31. TIOTROPIUM BROMIDE MONOHYDRATE [Suspect]
     Active Substance: TIOTROPIUM BROMIDE MONOHYDRATE
     Indication: Product used for unknown indication
     Route: 065
  32. TIPRANAVIR [Suspect]
     Active Substance: TIPRANAVIR
     Indication: Product used for unknown indication
     Route: 048
  33. TRAZODONE [Suspect]
     Active Substance: TRAZODONE HYDROCHLORIDE
     Indication: Product used for unknown indication
     Route: 048
  34. GLYCOPYRRONIUM\INDACATEROL [Suspect]
     Active Substance: GLYCOPYRRONIUM\INDACATEROL
     Indication: Product used for unknown indication
     Route: 065
  35. UMECLIDINIUM BROMIDE [Suspect]
     Active Substance: UMECLIDINIUM BROMIDE
     Indication: Product used for unknown indication
     Route: 065
  36. DIVALPROEX SODIUM [Suspect]
     Active Substance: DIVALPROEX SODIUM
     Indication: Product used for unknown indication
     Route: 065
  37. DIVALPROEX SODIUM [Suspect]
     Active Substance: DIVALPROEX SODIUM
     Indication: Product used for unknown indication
     Route: 048
  38. DIVALPROEX SODIUM [Suspect]
     Active Substance: DIVALPROEX SODIUM
     Indication: Product used for unknown indication
     Route: 065
  39. DIVALPROEX SODIUM [Suspect]
     Active Substance: DIVALPROEX SODIUM
     Indication: Product used for unknown indication
     Route: 048
  40. DIVALPROEX SODIUM [Suspect]
     Active Substance: DIVALPROEX SODIUM
     Indication: Product used for unknown indication
     Route: 065
  41. DIVALPROEX SODIUM [Suspect]
     Active Substance: DIVALPROEX SODIUM
     Indication: Product used for unknown indication
     Route: 065
  42. ZENHALE [Suspect]
     Active Substance: FORMOTEROL FUMARATE\MOMETASONE FUROATE
     Indication: Product used for unknown indication
     Route: 065
  43. LAMIVUDINE [Concomitant]
     Active Substance: LAMIVUDINE
     Route: 065
  44. ABACAVIR [Concomitant]
     Active Substance: ABACAVIR
     Indication: Product used for unknown indication
     Route: 065
  45. CHLORAL HYDRATE [Concomitant]
     Active Substance: CHLORAL HYDRATE
     Route: 065
  46. BISACODYL [Concomitant]
     Active Substance: BISACODYL
     Route: 065
  47. CALCIUM CARBONATE [Concomitant]
     Active Substance: CALCIUM CARBONATE
     Route: 065
  48. BENADRYL [Concomitant]
     Active Substance: DIPHENHYDRAMINE HYDROCHLORIDE
     Indication: Product used for unknown indication
     Route: 065
  49. ATOVAQUONE [Concomitant]
     Active Substance: ATOVAQUONE
     Indication: Product used for unknown indication
     Route: 065
  50. ACRIVASTINE [Concomitant]
     Active Substance: ACRIVASTINE
     Indication: Product used for unknown indication
     Route: 065
  51. ABACAVIR SULFATE [Concomitant]
     Active Substance: ABACAVIR SULFATE
     Indication: Product used for unknown indication
  52. ENFUVIRTIDE [Concomitant]
     Active Substance: ENFUVIRTIDE
     Indication: Product used for unknown indication
     Route: 048
  53. IMODIUM [Concomitant]
     Active Substance: LOPERAMIDE HYDROCHLORIDE
     Indication: Product used for unknown indication
     Route: 065
  54. KALETRA [Concomitant]
     Active Substance: LOPINAVIR\RITONAVIR
     Indication: Product used for unknown indication
     Route: 065
  55. LACTULOSE [Concomitant]
     Active Substance: LACTULOSE
     Indication: Product used for unknown indication
     Route: 065
  56. LITHIUM [Concomitant]
     Active Substance: LITHIUM
     Indication: Product used for unknown indication
     Route: 065
  57. NYSTATIN [Concomitant]
     Active Substance: NYSTATIN
     Indication: Product used for unknown indication
     Route: 065
  58. SERTRALINE [Concomitant]
     Active Substance: SERTRALINE HYDROCHLORIDE
     Indication: Product used for unknown indication
     Route: 065
  59. ENFUVIRTIDE [Concomitant]
     Active Substance: ENFUVIRTIDE
     Indication: Product used for unknown indication
     Route: 065

REACTIONS (24)
  - Asthma-chronic obstructive pulmonary disease overlap syndrome [Unknown]
  - Blood bilirubin increased [Unknown]
  - Bronchiectasis [Unknown]
  - Cardiac murmur [Unknown]
  - Cholelithiasis [Unknown]
  - Chronic obstructive pulmonary disease [Unknown]
  - Condition aggravated [Unknown]
  - Gastrooesophageal reflux disease [Unknown]
  - Hepatic enzyme increased [Unknown]
  - Hepatotoxicity [Unknown]
  - Hypomania [Unknown]
  - Jaundice cholestatic [Unknown]
  - Lung neoplasm malignant [Unknown]
  - Nasal polyps [Unknown]
  - Nausea [Unknown]
  - Oedema peripheral [Unknown]
  - Pneumonia [Unknown]
  - Psychotic disorder [Unknown]
  - Rhinitis allergic [Unknown]
  - Sarcoidosis [Unknown]
  - Schizophrenia [Unknown]
  - Total lung capacity increased [Unknown]
  - Vomiting [Unknown]
  - Wheezing [Unknown]
